FAERS Safety Report 7929202-4 (Version None)
Quarter: 2011Q4

REPORT INFORMATION
  Report Type: 
  Country: None (occurrence: None)
  Receive Date: 20111120
  Receipt Date: 20111107
  Transmission Date: 20120403
  Serious: Yes (Death, Other)
  Sender: FDA-Public Use
  Company Number: IL-BRISTOL-MYERS SQUIBB COMPANY-16239162

PATIENT
  Age: 43 Year
  Sex: Female

DRUGS (17)
  1. PACLITAXEL [Suspect]
     Indication: BREAST CANCER
  2. EXEMESTANE [Suspect]
     Indication: HORMONE THERAPY
  3. MITOMYCIN [Suspect]
     Indication: BREAST CANCER
  4. ARIMIDEX [Suspect]
     Indication: HORMONE THERAPY
  5. VINORELBINE [Suspect]
     Indication: BREAST CANCER
  6. CAPECITABINE [Suspect]
     Indication: BREAST CANCER
  7. FUROSEMIDE [Suspect]
  8. CARBOPLATIN [Suspect]
     Indication: BREAST CANCER
  9. FULVESTRANT [Suspect]
     Indication: HORMONE THERAPY
  10. CYCLOPHOSPHAMIDE [Suspect]
     Indication: BREAST CANCER
  11. DOXORUBICIN HCL [Suspect]
     Indication: BREAST CANCER
  12. TAMOXIFEN CITRATE [Suspect]
     Indication: HORMONE THERAPY
  13. BEVACIZUMAB [Suspect]
     Indication: BREAST CANCER
  14. MEGESTROL ACETATE [Suspect]
     Indication: HORMONE REPLACEMENT THERAPY
  15. GEMCITABINE [Suspect]
     Indication: BREAST CANCER
  16. IRINOTECAN HCL [Suspect]
     Indication: BREAST CANCER
  17. DOCETAXEL [Suspect]
     Indication: BREAST CANCER

REACTIONS (2)
  - HEPATIC FAILURE [None]
  - CARDIAC CIRRHOSIS [None]
